FAERS Safety Report 24236836 (Version 3)
Quarter: 2024Q4

REPORT INFORMATION
  Report Type: Report from Study
  Country: US (occurrence: US)
  Receive Date: 20240822
  Receipt Date: 20241031
  Transmission Date: 20250115
  Serious: No
  Sender: SAGE
  Company Number: US-SAGE-2024SAGE000087

PATIENT
  Age: 36 Year
  Sex: Female

DRUGS (3)
  1. ZULRESSO [Suspect]
     Active Substance: BREXANOLONE
     Indication: Perinatal depression
     Dosage: UNK
     Route: 042
     Dates: start: 20231114, end: 20231117
  2. SUMATRIPTAN [Concomitant]
     Active Substance: SUMATRIPTAN
     Indication: Headache
     Dosage: 25 MG, PRN
     Route: 065
     Dates: end: 20241114
  3. SUMATRIPTAN [Concomitant]
     Active Substance: SUMATRIPTAN
     Indication: Pain

REACTIONS (1)
  - Headache [Recovered/Resolved]

NARRATIVE: CASE EVENT DATE: 20231115
